FAERS Safety Report 12649302 (Version 2)
Quarter: 2017Q1

REPORT INFORMATION
  Report Type: Other
  Country: US (occurrence: US)
  Receive Date: 20160812
  Receipt Date: 20170112
  Transmission Date: 20170428
  Serious: No
  Sender: FDA-Public Use
  Company Number: US-DEPOMED, INC.-US-2016DEP009181

PATIENT

DRUGS (28)
  1. GABAPENTIN. [Concomitant]
     Active Substance: GABAPENTIN
     Indication: NEURALGIA
  2. REMERON [Concomitant]
     Active Substance: MIRTAZAPINE
  3. OMEPRAZOLE MAGNESIUM. [Concomitant]
     Active Substance: OMEPRAZOLE MAGNESIUM
  4. MAGNESIUM [Concomitant]
     Active Substance: MAGNESIUM
  5. PERCOCET [Concomitant]
     Active Substance: ACETAMINOPHEN\OXYCODONE HYDROCHLORIDE
     Indication: BACK PAIN
     Dosage: 10-325 MG
  6. HYDROCHLOROTHIAZIDE. [Concomitant]
     Active Substance: HYDROCHLOROTHIAZIDE
     Dosage: DF
  7. COLACE [Concomitant]
     Active Substance: DOCUSATE SODIUM
     Dosage: DF
  8. GLIPIZIDE. [Concomitant]
     Active Substance: GLIPIZIDE
  9. ATARAX [Concomitant]
     Active Substance: HYDROXYZINE HYDROCHLORIDE
  10. MICROZIDE [Concomitant]
     Active Substance: HYDROCHLOROTHIAZIDE
  11. OXYCONTIN [Concomitant]
     Active Substance: OXYCODONE HYDROCHLORIDE
     Indication: BACK PAIN
     Dosage: 20 MG, FREQUENCY UNKNOWN
  12. SIMVASTATIN. [Concomitant]
     Active Substance: SIMVASTATIN
     Dosage: DF
  13. CINNAMON. [Concomitant]
     Active Substance: CINNAMON
  14. TAMOXIFEN [Concomitant]
     Active Substance: TAMOXIFEN
  15. ASPIRIN. [Concomitant]
     Active Substance: ASPIRIN
  16. GABAPENTIN. [Concomitant]
     Active Substance: GABAPENTIN
     Indication: BACK PAIN
  17. KEFLEX [Concomitant]
     Active Substance: CEPHALEXIN
  18. VITAMIN D [Concomitant]
     Active Substance: CHOLECALCIFEROL
  19. FLEXERIL [Concomitant]
     Active Substance: CYCLOBENZAPRINE HYDROCHLORIDE
     Indication: BACK PAIN
  20. ZOCOR [Concomitant]
     Active Substance: SIMVASTATIN
  21. MILK THISTLE [Concomitant]
     Active Substance: MILK THISTLE
  22. DICLOFENAC POTASSIUM. [Suspect]
     Active Substance: DICLOFENAC POTASSIUM
     Indication: ARTHRALGIA
     Dates: start: 2005, end: 201501
  23. COZAAR [Concomitant]
     Active Substance: LOSARTAN POTASSIUM
  24. XANAX [Concomitant]
     Active Substance: ALPRAZOLAM
  25. TRICOR [Concomitant]
     Active Substance: FENOFIBRATE
  26. METFORMIN HCL [Concomitant]
     Active Substance: METFORMIN HYDROCHLORIDE
  27. CRANBERRY. [Concomitant]
     Active Substance: CRANBERRY
  28. ZIPSOR [Suspect]
     Active Substance: DICLOFENAC POTASSIUM
     Indication: ARTHRALGIA
     Dates: start: 2013, end: 201501

REACTIONS (10)
  - Depression [Unknown]
  - Blood cholesterol increased [Unknown]
  - Interstitial granulomatous dermatitis [Not Recovered/Not Resolved]
  - Breast disorder female [Unknown]
  - Cystitis [Unknown]
  - Back disorder [Unknown]
  - Hypertension [Unknown]
  - Skin discolouration [Not Recovered/Not Resolved]
  - Chronic kidney disease [Not Recovered/Not Resolved]
  - Anxiety [Unknown]

NARRATIVE: CASE EVENT DATE: 20140609
